FAERS Safety Report 9988557 (Version 1)
Quarter: 2014Q1

REPORT INFORMATION
  Report Type: Spontaneous
  Country: US (occurrence: US)
  Receive Date: 20140310
  Receipt Date: 20140310
  Transmission Date: 20141002
  Serious: No
  Sender: FDA-Public Use
  Company Number: US-BIOGENIDEC-2014BI018715

PATIENT
  Age: 55 Year
  Sex: Female

DRUGS (24)
  1. TECFIDERA [Suspect]
     Indication: PRODUCT USED FOR UNKNOWN INDICATION
     Route: 048
  2. AMPYRA [Concomitant]
     Indication: GAIT DISTURBANCE
     Route: 048
     Dates: start: 2010
  3. BOTOX [Concomitant]
     Indication: BLADDER CATHETERISATION
  4. LUTEIN [Concomitant]
  5. ACETYL L-CARNITINE [Concomitant]
  6. SLO-NIACIN [Concomitant]
     Indication: PRODUCT USED FOR UNKNOWN INDICATION
  7. OMEPRAZOLE [Concomitant]
  8. PEXEVA [Concomitant]
     Indication: PRODUCT USED FOR UNKNOWN INDICATION
  9. MIBETRIQ [Concomitant]
  10. TRILIPIX [Concomitant]
  11. BACLOFEN [Concomitant]
  12. SIMVASTATIN [Concomitant]
  13. BABY ASPIRIN [Concomitant]
  14. DEPAKOTE [Concomitant]
  15. VITAMIN C [Concomitant]
  16. VITAMIN D [Concomitant]
  17. FOLIC ACID [Concomitant]
  18. FENOFIBRIC ACID [Concomitant]
  19. HYDROCORTISONE [Concomitant]
  20. TERCONAZOLE [Concomitant]
     Indication: PRODUCT USED FOR UNKNOWN INDICATION
  21. DOXICYCLINE [Concomitant]
  22. ADVIL [Concomitant]
  23. ECOTRIN [Concomitant]
  24. MACROBID [Concomitant]
     Indication: URINARY TRACT INFECTION

REACTIONS (2)
  - Asthenia [Unknown]
  - Urinary tract infection [Unknown]
